FAERS Safety Report 18487797 (Version 1)
Quarter: 2020Q4

REPORT INFORMATION
  Report Type: Spontaneous
  Country: US (occurrence: US)
  Receive Date: 20201111
  Receipt Date: 20201111
  Transmission Date: 20210114
  Serious: No
  Sender: FDA-Public Use
  Company Number: US-JNJFOC-20201111956

PATIENT
  Age: 38 Year
  Sex: Male

DRUGS (7)
  1. MONTELUKAST [Suspect]
     Active Substance: MONTELUKAST SODIUM
     Indication: RASH
     Route: 065
  2. CETIRIZINE HYDROCHLORIDE. [Suspect]
     Active Substance: CETIRIZINE HYDROCHLORIDE
     Indication: PRURITUS
  3. CETIRIZINE HYDROCHLORIDE. [Suspect]
     Active Substance: CETIRIZINE HYDROCHLORIDE
     Indication: RASH
     Route: 065
  4. MONTELUKAST [Suspect]
     Active Substance: MONTELUKAST SODIUM
     Indication: PRURITUS
  5. FAMOTIDINE. [Suspect]
     Active Substance: FAMOTIDINE
     Indication: RASH
     Route: 065
  6. PREDNISONE. [Suspect]
     Active Substance: PREDNISONE
     Indication: URTICARIA CHRONIC
     Route: 065
  7. FAMOTIDINE. [Suspect]
     Active Substance: FAMOTIDINE
     Indication: PRURITUS

REACTIONS (4)
  - Off label use [Unknown]
  - Pruritus [Unknown]
  - Product use in unapproved indication [Unknown]
  - Rash [Unknown]
